FAERS Safety Report 6274199-9 (Version None)
Quarter: 2009Q3

REPORT INFORMATION
  Report Type: 
  Country: None (occurrence: None)
  Receive Date: 20090716
  Receipt Date: 20090706
  Transmission Date: 20100115
  Serious: Yes (Other)
  Sender: FDA-Public Use
  Company Number: 1000007340

PATIENT
  Age: 71 Year
  Sex: Male

DRUGS (2)
  1. DILTIAZEM HYDROCHLORIDE [Suspect]
  2. NIACIN [Suspect]

REACTIONS (1)
  - INSULIN AUTOIMMUNE SYNDROME [None]
